FAERS Safety Report 6072868-7 (Version None)
Quarter: 2009Q1

REPORT INFORMATION
  Report Type: 
  Country: None (occurrence: None)
  Receive Date: 20090205
  Receipt Date: 20090129
  Transmission Date: 20090719
  Serious: Yes (Other)
  Sender: FDA-Public Use
  Company Number: 6048650

PATIENT
  Age: 47 Year
  Sex: Female

DRUGS (5)
  1. BISOPROLOL FUMARATE [Suspect]
     Indication: HYPERTENSION
     Dosage: 5 MG (5 MG,1 IN 1 D) ORAL
     Route: 048
     Dates: start: 20080903, end: 20080921
  2. ASPIRIN [Suspect]
     Indication: ACUTE CORONARY SYNDROME
     Dosage: 100 MG (100 MG,1 IN 1 D) ORAL
     Route: 048
     Dates: start: 20080903, end: 20080921
  3. PLAVIX [Suspect]
     Indication: ACUTE CORONARY SYNDROME
     Dosage: 75 MG (75 MG,1 IN 1 D) ORAL
     Route: 048
     Dates: start: 20080903, end: 20080921
  4. MICARDIS HCT [Suspect]
     Indication: HYPERTENSION
     Dosage: ORAL
     Route: 048
  5. MICARDIS HCT [Suspect]

REACTIONS (1)
  - THROMBOTIC THROMBOCYTOPENIC PURPURA [None]
